FAERS Safety Report 7158215-8 (Version None)
Quarter: 2010Q4

REPORT INFORMATION
  Report Type: 
  Country: None (occurrence: None)
  Receive Date: 20101214
  Receipt Date: 20100324
  Transmission Date: 20110411
  Serious: Yes (Hospitalization)
  Sender: FDA-Public Use
  Company Number: US-ASTRAZENECA-2010SE12991

PATIENT
  Sex: Male

DRUGS (4)
  1. ROSUVASTATIN [Suspect]
     Indication: HYPERLIPIDAEMIA
     Route: 048
     Dates: start: 20091001
  2. TRILIPIX [Suspect]
     Indication: HYPERLIPIDAEMIA
     Route: 065
     Dates: start: 20090101, end: 20091001
  3. TRICOR [Concomitant]
     Indication: HYPERLIPIDAEMIA
  4. UNKNOWN THYROID MEDICATION [Concomitant]
     Indication: HYPERLIPIDAEMIA

REACTIONS (1)
  - HEPATIC FAILURE [None]
